FAERS Safety Report 7388238-5 (Version None)
Quarter: 2011Q2

REPORT INFORMATION
  Report Type: 
  Country: None (occurrence: None)
  Receive Date: 20110401
  Receipt Date: 20110328
  Transmission Date: 20111010
  Serious: Yes (Hospitalization)
  Sender: FDA-Public Use
  Company Number: US-B.I. PHARMACEUTICALS,INC./RIDGEFIELD-2011-BP-09361BP

PATIENT
  Sex: Female

DRUGS (4)
  1. SPIRIVA [Suspect]
     Indication: EMPHYSEMA
  2. SPIRIVA [Suspect]
     Indication: CHRONIC OBSTRUCTIVE PULMONARY DISEASE
     Dosage: 18 MCG
     Route: 055
     Dates: start: 20040101
  3. BUSPIRONE HCL [Concomitant]
     Route: 048
  4. VITAMIN B-12 [Concomitant]

REACTIONS (6)
  - MUSCLE SPASMS [None]
  - INSOMNIA [None]
  - BACK PAIN [None]
  - LUMBAR SPINAL STENOSIS [None]
  - SPINAL FRACTURE [None]
  - SPINAL MENINGEAL CYST [None]
